FAERS Safety Report 21583470 (Version 2)
Quarter: 2022Q4

REPORT INFORMATION
  Report Type: Spontaneous
  Country: IL (occurrence: IL)
  Receive Date: 20221111
  Receipt Date: 20221210
  Transmission Date: 20230112
  Serious: Yes (Hospitalization, Disabling, Other)
  Sender: FDA-Public Use
  Company Number: IL-TEVAIL-2022-IL-2824757

PATIENT
  Age: 65 Year
  Sex: Female

DRUGS (1)
  1. CLONAZEPAM [Suspect]
     Active Substance: CLONAZEPAM
     Indication: Surgery
     Dosage: DOSE OF 0.5, BEFORE GOING TO BED EVERY DAY
     Route: 065
     Dates: start: 2011

REACTIONS (18)
  - Disability [Unknown]
  - Haemorrhage [Unknown]
  - Loss of consciousness [Unknown]
  - Fall [Unknown]
  - Injury [Unknown]
  - Drug abuser [Unknown]
  - Cellulitis [Unknown]
  - Hyperthyroidism [Unknown]
  - Behcet^s syndrome [Unknown]
  - Spinal cord injury [Unknown]
  - Hyperhidrosis [Unknown]
  - Tremor [Unknown]
  - Muscle strain [Unknown]
  - Hypoaesthesia [Unknown]
  - Weight decreased [Unknown]
  - Visual impairment [Unknown]
  - Aphthous ulcer [Unknown]
  - Loss of personal independence in daily activities [Unknown]
